FAERS Safety Report 9707451 (Version 2)
Quarter: 2013Q4

REPORT INFORMATION
  Report Type: Spontaneous
  Country: US (occurrence: US)
  Receive Date: 20131125
  Receipt Date: 20131125
  Transmission Date: 20140711
  Serious: Yes (Other)
  Sender: FDA-Public Use
  Company Number: US-TEVA-373882USA

PATIENT
  Age: 33 Year
  Sex: Female
  Weight: 71.73 kg

DRUGS (3)
  1. PARAGARD 380A [Suspect]
     Indication: CONTRACEPTION
     Route: 015
     Dates: start: 20121027
  2. PRENATAL [Concomitant]
     Indication: VITAMIN SUPPLEMENTATION
  3. DHA [Concomitant]
     Indication: VITAMIN SUPPLEMENTATION

REACTIONS (1)
  - Uterine perforation [Recovered/Resolved]
